FAERS Safety Report 23813120 (Version 1)
Quarter: 2024Q2

REPORT INFORMATION
  Report Type: Spontaneous
  Country: US (occurrence: US)
  Receive Date: 20240503
  Receipt Date: 20240503
  Transmission Date: 20240716
  Serious: Yes (Hospitalization, Other)
  Sender: FDA-Public Use
  Company Number: US-AMNEAL PHARMACEUTICALS-2023-AMRX-03720

PATIENT
  Age: 0 Year
  Sex: Male
  Weight: 9.524 kg

DRUGS (6)
  1. VIGABATRIN [Suspect]
     Active Substance: VIGABATRIN
     Indication: Seizure
     Dosage: MIX 1 PACKET IN 10 ML OF COLD OR ROOM TEMPERATURE WATER AND GIVE/TAKE 3.5 ML (175 MG) TWICE A DAY FO
     Route: 048
     Dates: start: 20231017
  2. VIGABATRIN [Suspect]
     Active Substance: VIGABATRIN
     Dosage: MIX 1 PACKET IN 10 ML OF COLD OR ROOM TEMPERATURE WATER AND GIVE/TAKE 3.5 ML (175 MG) TWICE A DAY FO
     Route: 048
  3. FAMOTIDINE [Concomitant]
     Active Substance: FAMOTIDINE
     Indication: Product used for unknown indication
     Dosage: 0.6 ML
     Route: 065
     Dates: start: 20231018
  4. VIMPAT [Concomitant]
     Active Substance: LACOSAMIDE
     Indication: Product used for unknown indication
     Dosage: 35 ML TWICE A DAY
     Route: 065
  5. VIMPAT [Concomitant]
     Active Substance: LACOSAMIDE
     Dosage: 3.5 ML
     Dates: start: 20231018
  6. ZYRTEC [Concomitant]
     Active Substance: CETIRIZINE HYDROCHLORIDE
     Indication: Product used for unknown indication
     Dosage: 10 MG CAPSULE
     Route: 048
     Dates: start: 20231229

REACTIONS (6)
  - Vomiting projectile [Recovered/Resolved]
  - Seizure [Recovered/Resolved]
  - COVID-19 [Unknown]
  - Muscle spasms [Not Recovered/Not Resolved]
  - Sinusitis [Recovering/Resolving]
  - Product dose omission issue [Unknown]

NARRATIVE: CASE EVENT DATE: 20231014
